FAERS Safety Report 9355672 (Version 2)
Quarter: 2013Q3

REPORT INFORMATION
  Report Type: Report from Study
  Country: US (occurrence: US)
  Receive Date: 20130619
  Receipt Date: 20130712
  Transmission Date: 20140515
  Serious: Yes (Hospitalization, Other)
  Sender: FDA-Public Use
  Company Number: US-BAYER-2013-063432

PATIENT
  Age: 62 Year
  Sex: Female

DRUGS (3)
  1. STIVARGA [Suspect]
     Indication: COLON CANCER
     Dosage: 160 MG DAILY
     Route: 048
     Dates: start: 20130518
  2. STIVARGA [Suspect]
     Indication: COLON CANCER
     Dosage: 1 TAB DAILY
     Dates: start: 20130610
  3. STIVARGA [Suspect]
     Indication: COLON CANCER
     Dosage: TOTAL DAILY DOSE 160 MG, AM X 21 DAYS
     Route: 048
     Dates: start: 201306

REACTIONS (13)
  - Dehydration [None]
  - Pain [None]
  - Blood pressure increased [None]
  - Migraine [Recovered/Resolved]
  - Nausea [None]
  - Feeling abnormal [None]
  - Vomiting [Recovered/Resolved]
  - Vomiting [None]
  - Myalgia [None]
  - Back pain [None]
  - Headache [None]
  - Intracranial aneurysm [None]
  - Aplastic anaemia [None]
